FAERS Safety Report 5135701-3 (Version None)
Quarter: 2006Q4

REPORT INFORMATION
  Report Type: 
  Country: None (occurrence: None)
  Receive Date: 20061026
  Receipt Date: 20061016
  Transmission Date: 20070319
  Serious: Yes (Other)
  Sender: FDA-Public Use
  Company Number: PHFR2006IE03093

PATIENT
  Age: 36 Year
  Sex: Female

DRUGS (5)
  1. CLOZARIL [Suspect]
     Indication: SCHIZOPHRENIA
     Dosage: 200MG MANE; 325 MG NOCTE
     Route: 048
     Dates: start: 20060224
  2. EPILIM [Concomitant]
     Dosage: 300 MG, BID
  3. LAMICTAL [Concomitant]
     Dosage: 75 MG, BID
  4. PROPRANOLOL [Concomitant]
     Dosage: 20 MG, BID
  5. DIAZEPAM [Concomitant]
     Dosage: UNK, TID

REACTIONS (4)
  - BALANCE DISORDER [None]
  - COORDINATION ABNORMAL [None]
  - DROOLING [None]
  - TRANSIENT ISCHAEMIC ATTACK [None]
